FAERS Safety Report 6865750-6 (Version None)
Quarter: 2010Q3

REPORT INFORMATION
  Report Type: 
  Country: None (occurrence: None)
  Receive Date: 20100721
  Receipt Date: 20080801
  Transmission Date: 20110219
  Serious: No
  Sender: FDA-Public Use
  Company Number: US-PFIZER INC-2008037525

PATIENT
  Sex: Female
  Weight: 70.31 kg

DRUGS (9)
  1. CHANTIX [Suspect]
     Indication: SMOKING CESSATION THERAPY
     Route: 048
     Dates: start: 20080301
  2. VALSARTAN [Concomitant]
  3. ATENOLOL [Concomitant]
  4. RESPAIRE-SR-120 [Concomitant]
  5. SYNTHROID [Concomitant]
  6. VERAPAMIL [Concomitant]
  7. CYMBALTA [Concomitant]
  8. LAMICTAL [Concomitant]
  9. LIPITOR [Concomitant]

REACTIONS (2)
  - ASTHENIA [None]
  - FATIGUE [None]
